FAERS Safety Report 9354125 (Version 13)
Quarter: 2014Q2

REPORT INFORMATION
  Report Type: Spontaneous
  Country: US (occurrence: US)
  Receive Date: 20130618
  Receipt Date: 20140527
  Transmission Date: 20141212
  Serious: Yes (Hospitalization)
  Sender: FDA-Public Use
  Company Number: US-GLAXOSMITHKLINE-A1021487A

PATIENT
  Age: 64 Year
  Sex: Female

DRUGS (2)
  1. FLOLAN [Suspect]
     Indication: COR PULMONALE CHRONIC
     Dosage: 26NGKM CONTINUOUS
     Route: 042
     Dates: start: 20120622
  2. REVATIO [Concomitant]

REACTIONS (7)
  - Investigation [Unknown]
  - Infusion site infection [Recovered/Resolved]
  - Dyspnoea [Unknown]
  - Chest pain [Unknown]
  - Drug intolerance [Unknown]
  - Fluid retention [Unknown]
  - Hypoxia [Unknown]
